FAERS Safety Report 16639621 (Version 16)
Quarter: 2021Q1

REPORT INFORMATION
  Report Type: Report from Study
  Country: None (occurrence: NL)
  Receive Date: 20190727
  Receipt Date: 20210316
  Transmission Date: 20210419
  Serious: Yes (Hospitalization, Other)
  Sender: FDA-Public Use
  Company Number: NL-ABBVIE-19S-114-2720668-00

PATIENT
  Age: 55 Year
  Sex: Female
  Weight: 51 kg

DRUGS (43)
  1. DUODOPA [Suspect]
     Active Substance: CARBIDOPA\LEVODOPA
     Dosage: MD 6.3,CD 1.8,ED 2.0
     Route: 050
     Dates: start: 2019
  2. DUODOPA [Suspect]
     Active Substance: CARBIDOPA\LEVODOPA
     Dosage: MD: 5.8 CD: 3.4 ED: 1.5, REMAINS AT 16 HOURS
     Route: 050
  3. DUODOPA [Suspect]
     Active Substance: CARBIDOPA\LEVODOPA
     Dosage: MD 5,3ML CD 3,3ML/H ED: 1,3ML
     Route: 050
  4. LACTULOSE. [Concomitant]
     Active Substance: LACTULOSE
     Indication: PRODUCT USED FOR UNKNOWN INDICATION
  5. LEVODOPA [Concomitant]
     Active Substance: LEVODOPA
     Indication: PRODUCT USED FOR UNKNOWN INDICATION
  6. DUODOPA [Suspect]
     Active Substance: CARBIDOPA\LEVODOPA
     Dosage: MD: 6.3 ML, CD: 3.4 ML/H, ED: 2.5 ML, REMAINS AT 16 HOURS
     Route: 050
  7. DUODOPA [Suspect]
     Active Substance: CARBIDOPA\LEVODOPA
     Dosage: MD: 6.3 ML, CD:3.3 ML/H, ED: 2.4 ML, REMAINS AT 16 HOURS
     Route: 050
  8. DUODOPA [Suspect]
     Active Substance: CARBIDOPA\LEVODOPA
     Route: 050
  9. DUODOPA [Suspect]
     Active Substance: CARBIDOPA\LEVODOPA
     Dosage: MD: 3.8, CD: 2.0, ED: 1.5 16 HOUR ADMINISTRATION?DOSE DECREASED
     Route: 050
     Dates: start: 2019, end: 2019
  10. DUODOPA [Suspect]
     Active Substance: CARBIDOPA\LEVODOPA
     Dosage: MD 6.3,CD 1.8,ED 2.1
     Route: 050
  11. SIFROL [Concomitant]
     Active Substance: PRAMIPEXOLE
     Indication: PRODUCT USED FOR UNKNOWN INDICATION
  12. SUMATRIPTAN. [Concomitant]
     Active Substance: SUMATRIPTAN
     Indication: MIGRAINE
     Dosage: WHEN NEEDED, HARDLY EVER
  13. FOLIC ACID. [Concomitant]
     Active Substance: FOLIC ACID
     Indication: PRODUCT USED FOR UNKNOWN INDICATION
  14. SYMMETREL [Concomitant]
     Active Substance: AMANTADINE HYDROCHLORIDE
     Indication: PRODUCT USED FOR UNKNOWN INDICATION
  15. DUODOPA [Suspect]
     Active Substance: CARBIDOPA\LEVODOPA
     Dosage: CD 1.8 ED 1.3
     Route: 050
     Dates: start: 2019, end: 2019
  16. DUODOPA [Suspect]
     Active Substance: CARBIDOPA\LEVODOPA
     Route: 050
     Dates: start: 20210223
  17. DUODOPA [Suspect]
     Active Substance: CARBIDOPA\LEVODOPA
     Dosage: MD: 3.1ML, CD: 3.0ML/H, ED: 1.3ML, CND: 2.0ML/H, END: 1.3ML
     Route: 050
  18. SINEMET [Concomitant]
     Active Substance: CARBIDOPA\LEVODOPA
     Indication: PRODUCT USED FOR UNKNOWN INDICATION
     Route: 048
  19. CLONAZEPAM. [Concomitant]
     Active Substance: CLONAZEPAM
     Indication: MUSCLE SPASMS
  20. DUODOPA [Suspect]
     Active Substance: CARBIDOPA\LEVODOPA
     Dosage: MD: 6.8, CD: 2.1, ED: 1.5?16 HOUR ADMINISTRATION
     Route: 050
     Dates: start: 2019, end: 2019
  21. DUODOPA [Suspect]
     Active Substance: CARBIDOPA\LEVODOPA
     Dosage: MD: 6.8, CD: 1.9, ED: 1.5?16 HOUR ADMINISTRATION
     Route: 050
     Dates: start: 2019, end: 2019
  22. DUODOPA [Suspect]
     Active Substance: CARBIDOPA\LEVODOPA
     Dosage: MD: 6.3 ML, CD: 3.6 ML/H, ED: 3.1 ML, REMAINS AT 16 HOURS
     Route: 050
  23. DUODOPA [Suspect]
     Active Substance: CARBIDOPA\LEVODOPA
     Dosage: MD: 5.3 ML, CD: 3.4 ML/H, ED: 1.3 ML, REMAINS AT 16 HOURS
     Route: 050
  24. DUODOPA [Suspect]
     Active Substance: CARBIDOPA\LEVODOPA
     Dosage: MD: 3.1ML, CD: 3.0ML/H, ED: 1.3ML, CND: 2.0ML/H, END: 1.3ML
     Route: 050
     Dates: start: 20210212, end: 202102
  25. OMEPRAZOLE. [Concomitant]
     Active Substance: OMEPRAZOLE
     Indication: PRODUCT USED FOR UNKNOWN INDICATION
  26. DUODOPA [Suspect]
     Active Substance: CARBIDOPA\LEVODOPA
     Dosage: CD BY 0.1 ML/HR. RECENTLY THIS WAS DECREASED BY 0.2 ML/HOUR
     Route: 050
     Dates: start: 2019, end: 2019
  27. DUODOPA [Suspect]
     Active Substance: CARBIDOPA\LEVODOPA
     Dosage: MD 6.3 CD 2.1 ED 3.1
     Route: 050
  28. DUODOPA [Suspect]
     Active Substance: CARBIDOPA\LEVODOPA
     Dosage: MD 3.1 ML CD 3.0 ML/H ED 1.3 ML CND 2.1 ML/H END 1.3 ML
     Route: 050
  29. RIVOTRIL [Concomitant]
     Active Substance: CLONAZEPAM
     Indication: PRODUCT USED FOR UNKNOWN INDICATION
     Dosage: 2X0.5 MG
     Route: 048
  30. PRAMIPEXOLE. [Concomitant]
     Active Substance: PRAMIPEXOLE
     Indication: PRODUCT USED FOR UNKNOWN INDICATION
     Dates: end: 2020
  31. PRAMIPEXOLE. [Concomitant]
     Active Substance: PRAMIPEXOLE
     Dosage: REDUCED
     Dates: start: 20200618
  32. MACROGOL [Concomitant]
     Active Substance: POLYETHYLENE GLYCOLS
     Indication: PRODUCT USED FOR UNKNOWN INDICATION
  33. ALENDRONIC ACID;CALCIUM CARBONATE;COLECALCIFE [Concomitant]
     Indication: PRODUCT USED FOR UNKNOWN INDICATION
  34. DUODOPA [Suspect]
     Active Substance: CARBIDOPA\LEVODOPA
     Indication: PARKINSON^S DISEASE
     Dosage: MD: 3.8, CD: 2.2, ED: 1.5 16 HOUR ADMINISTRATION?DOSE DECREASED
     Route: 050
     Dates: start: 20190312, end: 2019
  35. DUODOPA [Suspect]
     Active Substance: CARBIDOPA\LEVODOPA
     Dosage: MD: 6.3, CD: 3.6, ED: 3.1
     Route: 050
  36. DUODOPA [Suspect]
     Active Substance: CARBIDOPA\LEVODOPA
     Dosage: MD: 6.3 ML, CD: 3.2 ML/H, ED: 3.1 ML, REMAINS AT 16 HOURS
     Route: 050
  37. DUODOPA [Suspect]
     Active Substance: CARBIDOPA\LEVODOPA
     Dosage: CD 1.7 ED 1.0
     Route: 050
     Dates: start: 2019, end: 2019
  38. DUODOPA [Suspect]
     Active Substance: CARBIDOPA\LEVODOPA
     Dosage: MD: 6.3, CD: 2.3, ED: 3.0; 16 HRS/DAY
     Route: 050
  39. DUODOPA [Suspect]
     Active Substance: CARBIDOPA\LEVODOPA
     Dosage: MD: 8.0, CD: 3.2, ED: 3.1
     Route: 050
  40. DUODOPA [Suspect]
     Active Substance: CARBIDOPA\LEVODOPA
     Dosage: MD: 6.3 ML, CD: 2.3 ML/H, ED: 3.0 ML
     Route: 050
  41. DUODOPA [Suspect]
     Active Substance: CARBIDOPA\LEVODOPA
     Dosage: MD: 5.8 ML, CD: 3.4 ML/H, ED: 1.5 ML, REMAINS AT 16 HOURS
     Route: 050
  42. ENTACAPONE. [Concomitant]
     Active Substance: ENTACAPONE
     Indication: PRODUCT USED FOR UNKNOWN INDICATION
     Dosage: ONE TIME DAILY IF NECESSARY
  43. VITAMIN B12 [Concomitant]
     Active Substance: CYANOCOBALAMIN
     Indication: PRODUCT USED FOR UNKNOWN INDICATION

REACTIONS (68)
  - Chorea [Not Recovered/Not Resolved]
  - Somnolence [Not Recovered/Not Resolved]
  - Stoma site discharge [Recovered/Resolved]
  - Weight decreased [Recovered/Resolved]
  - Stoma site erythema [Recovered/Resolved]
  - Muscle spasms [Not Recovered/Not Resolved]
  - Freezing phenomenon [Not Recovered/Not Resolved]
  - Parkinson^s disease [Unknown]
  - Rib fracture [Not Recovered/Not Resolved]
  - Respiratory tract infection [Unknown]
  - Abdominal pain upper [Recovered/Resolved]
  - Psychomotor hyperactivity [Not Recovered/Not Resolved]
  - Inflammation [Recovered/Resolved]
  - Abnormal dreams [Recovered/Resolved]
  - Hyperkinesia [Not Recovered/Not Resolved]
  - Pain [Recovered/Resolved]
  - Dyskinesia [Not Recovered/Not Resolved]
  - On and off phenomenon [Unknown]
  - Device dislocation [Recovered/Resolved]
  - Faeces hard [Recovered/Resolved]
  - Musculoskeletal discomfort [Not Recovered/Not Resolved]
  - Insomnia [Recovering/Resolving]
  - Amino acid level increased [Not Recovered/Not Resolved]
  - Muscle spasms [Not Recovered/Not Resolved]
  - Decreased appetite [Recovered/Resolved]
  - Abdominal distension [Not Recovered/Not Resolved]
  - Therapeutic product effect incomplete [Not Recovered/Not Resolved]
  - Bradykinesia [Not Recovered/Not Resolved]
  - Unevaluable event [Not Recovered/Not Resolved]
  - Dyskinesia [Not Recovered/Not Resolved]
  - Feeling abnormal [Not Recovered/Not Resolved]
  - Urinary tract infection [Recovered/Resolved]
  - Vitamin B12 abnormal [Recovering/Resolving]
  - Blood folate abnormal [Recovering/Resolving]
  - Polyneuropathy [Not Recovered/Not Resolved]
  - Medical device site ulcer [Unknown]
  - Device issue [Unknown]
  - Eating disorder [Not Recovered/Not Resolved]
  - Fatigue [Not Recovered/Not Resolved]
  - Abnormal dreams [Recovered/Resolved]
  - Weight decreased [Recovered/Resolved]
  - Overdose [Recovered/Resolved]
  - Muscle rigidity [Not Recovered/Not Resolved]
  - Movement disorder [Not Recovered/Not Resolved]
  - Dystonia [Recovering/Resolving]
  - Constipation [Recovered/Resolved]
  - Stoma site discharge [Recovered/Resolved]
  - Device kink [Recovered/Resolved]
  - Abnormal faeces [Recovered/Resolved]
  - Device issue [Not Recovered/Not Resolved]
  - Amnesia [Recovered/Resolved]
  - Musculoskeletal stiffness [Unknown]
  - Therapeutic product effect decreased [Recovered/Resolved]
  - Weight decreased [Not Recovered/Not Resolved]
  - Device expulsion [Unknown]
  - Stoma site discharge [Not Recovered/Not Resolved]
  - Eye laser surgery [Unknown]
  - Pain in extremity [Recovered/Resolved]
  - Chills [Not Recovered/Not Resolved]
  - Impaired gastric emptying [Not Recovered/Not Resolved]
  - Mobility decreased [Not Recovered/Not Resolved]
  - Pain in extremity [Not Recovered/Not Resolved]
  - Weight increased [Recovered/Resolved]
  - Dyspnoea [Recovered/Resolved]
  - Dyspnoea [Recovering/Resolving]
  - Drug ineffective [Recovered/Resolved]
  - Tremor [Unknown]
  - Gait disturbance [Not Recovered/Not Resolved]

NARRATIVE: CASE EVENT DATE: 2019
